FAERS Safety Report 5264150-2 (Version None)
Quarter: 2007Q1

REPORT INFORMATION
  Report Type: 
  Country: None (occurrence: None)
  Receive Date: 20070309
  Receipt Date: 20070227
  Transmission Date: 20070707
  Serious: Yes (Other)
  Sender: FDA-Public Use
  Company Number: 2007R3-06045

PATIENT
  Age: 15 Year
  Sex: Female

DRUGS (2)
  1. SERTRALINE HCL [Suspect]
     Indication: DEPRESSION
     Dosage: 50 MG, QD, ORAL
     Route: 048
  2. HALOPERIDOL [Concomitant]

REACTIONS (1)
  - MUSCLE SPASTICITY [None]
